FAERS Safety Report 8008042-4 (Version None)
Quarter: 2011Q4

REPORT INFORMATION
  Report Type: 
  Country: None (occurrence: None)
  Receive Date: 20111227
  Receipt Date: 20111219
  Transmission Date: 20120403
  Serious: Yes (Life-Threatening, Hospitalization, Other)
  Sender: FDA-Public Use
  Company Number: PHHY2011DE111178

PATIENT
  Age: 67 Year
  Sex: Male
  Weight: 120 kg

DRUGS (1)
  1. VOLTAREN [Suspect]
     Indication: BACK PAIN
     Dosage: 1 DF, QD
     Route: 048
     Dates: start: 20110818, end: 20110826

REACTIONS (4)
  - CLOSTRIDIUM DIFFICILE COLITIS [None]
  - RENAL FAILURE ACUTE [None]
  - GENERAL PHYSICAL HEALTH DETERIORATION [None]
  - CAMPYLOBACTER INTESTINAL INFECTION [None]
